FAERS Safety Report 6493389-3 (Version None)
Quarter: 2009Q4

REPORT INFORMATION
  Report Type: 
  Country: None (occurrence: None)
  Receive Date: 20091211
  Receipt Date: 20091211
  Transmission Date: 20100525
  Serious: No
  Sender: FDA-Public Use
  Company Number: None

PATIENT
  Age: 63 Year
  Sex: Female
  Weight: 61.4 kg

DRUGS (2)
  1. TRILIPIX [Suspect]
     Indication: BLOOD TRIGLYCERIDES INCREASED
     Dosage: 135 MG 1 A DAY ORAL
     Route: 048
     Dates: start: 20090909, end: 20091028
  2. PREDNISONE [Concomitant]

REACTIONS (7)
  - CHILLS [None]
  - HEPATIC ENZYME INCREASED [None]
  - OEDEMA MOUTH [None]
  - PAIN [None]
  - RASH [None]
  - SWELLING FACE [None]
  - URTICARIA [None]
